FAERS Safety Report 5173740-7 (Version None)
Quarter: 2006Q4

REPORT INFORMATION
  Report Type: 
  Country: None (occurrence: None)
  Receive Date: 20061208
  Receipt Date: 20061208
  Transmission Date: 20070319
  Serious: Yes (Hospitalization)
  Sender: FDA-Public Use
  Company Number: None

PATIENT
  Sex: Female
  Weight: 77 kg

DRUGS (11)
  1. GLIADEL [Suspect]
     Indication: GLIOBLASTOMA MULTIFORME
     Dosage: 7.7 MG PER WAFER ONCE IV
     Route: 042
     Dates: start: 20060711
  2. 06-BENZYLGUANINE (06BG) [Suspect]
     Indication: GLIOBLASTOMA MULTIFORME
     Dosage: 30 MG/M2 INFUSION X 5 DAYS IV
     Route: 042
     Dates: start: 20060711, end: 20060715
  3. DECADRON [Concomitant]
  4. VALPROIC ACID [Suspect]
  5. PROTONIX [Concomitant]
  6. LEXAPRO [Concomitant]
  7. SENOKOT [Concomitant]
  8. SODIUM CHLORIDE [Concomitant]
  9. TYLENOL [Concomitant]
  10. DULCOLAX [Concomitant]
  11. LOVENOX [Concomitant]

REACTIONS (19)
  - CENTRAL NERVOUS SYSTEM LESION [None]
  - CEREBRAL HAEMORRHAGE [None]
  - DIARRHOEA [None]
  - DISORIENTATION [None]
  - GASTROENTERITIS VIRAL [None]
  - IMPAIRED HEALING [None]
  - INFECTION [None]
  - INTRACRANIAL HYPOTENSION [None]
  - LETHARGY [None]
  - LOSS OF CONSCIOUSNESS [None]
  - NEPHRITIS INTERSTITIAL [None]
  - NEUROLOGICAL SYMPTOM [None]
  - NUCLEAR MAGNETIC RESONANCE IMAGING BRAIN ABNORMAL [None]
  - POST PROCEDURAL COMPLICATION [None]
  - RENAL FAILURE ACUTE [None]
  - RENAL TUBULAR NECROSIS [None]
  - THERAPY NON-RESPONDER [None]
  - WOUND DRAINAGE [None]
  - WOUND INFECTION STAPHYLOCOCCAL [None]
